FAERS Safety Report 13569300 (Version 6)
Quarter: 2017Q3

REPORT INFORMATION
  Report Type: Report from Study
  Country: CA (occurrence: CA)
  Receive Date: 20170522
  Receipt Date: 20170726
  Transmission Date: 20171127
  Serious: Yes (Death, Hospitalization, Other)
  Sender: FDA-Public Use
  Company Number: PHHY2016CA124740

PATIENT
  Age: 74 Year
  Sex: Male

DRUGS (6)
  1. CORTISONE [Concomitant]
     Active Substance: CORTISONE\HYDROCORTISONE
     Dosage: UNK
     Route: 065
     Dates: start: 20170219
  2. CORTISONE [Concomitant]
     Active Substance: CORTISONE\HYDROCORTISONE
     Dosage: UNK
     Route: 065
     Dates: start: 20170628
  3. FENTANYL. [Concomitant]
     Active Substance: FENTANYL
     Indication: PRODUCT USED FOR UNKNOWN INDICATION
     Dosage: 37 UG/HR, UNK
     Route: 065
     Dates: start: 201706
  4. SANDOSTATIN LAR DEPOT [Suspect]
     Active Substance: OCTREOTIDE ACETATE
     Indication: CARCINOID TUMOUR
     Dosage: 30 MG, QMO (EVERY 4 WEEKS)
     Route: 030
     Dates: start: 20160811, end: 20170601
  5. CORTISONE [Concomitant]
     Active Substance: CORTISONE\HYDROCORTISONE
     Indication: INTERVERTEBRAL DISC COMPRESSION
     Dosage: UNK
     Route: 065
     Dates: start: 20160831
  6. SANDOSTATIN LAR DEPOT [Suspect]
     Active Substance: OCTREOTIDE ACETATE
     Dosage: 40 MG, QMO
     Route: 030
     Dates: start: 20170628

REACTIONS (19)
  - Death [Fatal]
  - Feeding disorder [Unknown]
  - Intestinal obstruction [Unknown]
  - Balance disorder [Unknown]
  - Diarrhoea [Unknown]
  - Headache [Unknown]
  - Blood pressure systolic increased [Unknown]
  - General physical health deterioration [Unknown]
  - Insomnia [Unknown]
  - Bowel movement irregularity [Unknown]
  - Faeces discoloured [Unknown]
  - Fatigue [Unknown]
  - Vomiting [Unknown]
  - Gastrointestinal disorder [Unknown]
  - Malignant neoplasm progression [Unknown]
  - Injection site pain [Unknown]
  - Weight decreased [Unknown]
  - Fall [Unknown]
  - Hypertension [Unknown]

NARRATIVE: CASE EVENT DATE: 2016
